FAERS Safety Report 8433467-2 (Version None)
Quarter: 2012Q2

REPORT INFORMATION
  Report Type: 
  Country: None (occurrence: None)
  Receive Date: 20120613
  Receipt Date: 20120607
  Transmission Date: 20120825
  Serious: Yes (Other)
  Sender: FDA-Public Use
  Company Number: CN-JNJFOC-20120503227

PATIENT
  Sex: Male
  Weight: 55 kg

DRUGS (2)
  1. IMODIUM [Suspect]
     Indication: DIARRHOEA
     Dosage: 4MG ONE PER DAY
     Route: 048
     Dates: start: 20110323, end: 20110326
  2. IMODIUM [Suspect]
     Indication: ABDOMINAL PAIN
     Dosage: 4MG ONE PER DAY
     Route: 048
     Dates: start: 20110323, end: 20110326

REACTIONS (1)
  - INTESTINAL OBSTRUCTION [None]
